FAERS Safety Report 16376956 (Version 1)
Quarter: 2019Q3

REPORT INFORMATION
  Report Type: Spontaneous
  Country: US (occurrence: US)
  Receive Date: 20190530
  Receipt Date: 20190530
  Transmission Date: 20191004
  Serious: No
  Sender: FDA-Public Use
  Company Number: None

PATIENT
  Age: 82 Year
  Sex: Male
  Weight: 70.2 kg

DRUGS (3)
  1. OMEGA 3-6-9 [Concomitant]
     Active Substance: FISH OIL
  2. LUMIGAN [Suspect]
     Active Substance: BIMATOPROST
     Indication: GLAUCOMA
     Dosage: ?          QUANTITY:1 DROP(S);?
     Route: 047
     Dates: start: 20190516, end: 20190519
  3. VITAMINS B AND D [Concomitant]

REACTIONS (4)
  - Eye pain [None]
  - Drug ineffective [None]
  - Erythema of eyelid [None]
  - Intraocular pressure increased [None]

NARRATIVE: CASE EVENT DATE: 20190519
